FAERS Safety Report 21918211 (Version 1)
Quarter: 2023Q1

REPORT INFORMATION
  Report Type: Spontaneous
  Country: ES (occurrence: ES)
  Receive Date: 20230127
  Receipt Date: 20230127
  Transmission Date: 20230417
  Serious: Yes (Other)
  Sender: FDA-Public Use
  Company Number: None

PATIENT
  Age: 39 Year
  Sex: Male
  Weight: 63 kg

DRUGS (2)
  1. LEVOTHYROXINE SODIUM [Suspect]
     Active Substance: LEVOTHYROXINE SODIUM
     Indication: Hypothyroidism
     Dates: start: 2018
  2. COMIRNATY [Suspect]
     Active Substance: TOZINAMERAN
     Indication: COVID-19 immunisation
     Dosage: DOSE 2 - ADMINISTRATION SITE: LEFT
     Dates: start: 20210423, end: 20210423

REACTIONS (3)
  - Left ventricular hypertrophy [Not Recovered/Not Resolved]
  - Urticaria [Not Recovered/Not Resolved]
  - Left atrial hypertrophy [Not Recovered/Not Resolved]

NARRATIVE: CASE EVENT DATE: 20210601
